FAERS Safety Report 7746416-7 (Version None)
Quarter: 2011Q3

REPORT INFORMATION
  Report Type: 
  Country: None (occurrence: None)
  Receive Date: 20110913
  Receipt Date: 20110913
  Transmission Date: 20111222
  Serious: Yes (Life-Threatening, Hospitalization)
  Sender: FDA-Public Use
  Company Number: None

PATIENT
  Age: 38 Year
  Sex: Female
  Weight: 67.131 kg

DRUGS (3)
  1. CITALOPRAM HYDROBROMIDE [Suspect]
     Indication: ANXIETY
     Dosage: 20 MG
     Route: 048
  2. LAMICTAL [Concomitant]
     Route: 048
  3. CLONAZEPAM [Concomitant]
     Route: 048

REACTIONS (6)
  - PAIN IN EXTREMITY [None]
  - SUPRAVENTRICULAR EXTRASYSTOLES [None]
  - CHEST PAIN [None]
  - ARRHYTHMIA [None]
  - ANXIETY [None]
  - MYOCARDIAL ISCHAEMIA [None]
